FAERS Safety Report 6204455-1 (Version None)
Quarter: 2009Q2

REPORT INFORMATION
  Report Type: 
  Country: None (occurrence: None)
  Receive Date: 20090527
  Receipt Date: 20090519
  Transmission Date: 20091009
  Serious: Yes (Hospitalization)
  Sender: FDA-Public Use
  Company Number: DE-ABBOTT-09P-062-0574790-00

PATIENT
  Sex: Female

DRUGS (3)
  1. HUMIRA [Suspect]
     Indication: RHEUMATOID ARTHRITIS
     Route: 058
     Dates: start: 20080117
  2. HUMIRA [Suspect]
     Route: 058
     Dates: start: 20090517
  3. ANTI-HYPERTONIC AGENT [Suspect]
     Indication: HYPERTONIA

REACTIONS (1)
  - RESPIRATORY DISORDER [None]
